FAERS Safety Report 7809756-9 (Version None)
Quarter: 2011Q4

REPORT INFORMATION
  Report Type: 
  Country: None (occurrence: None)
  Receive Date: 20111012
  Receipt Date: 20110929
  Transmission Date: 20120403
  Serious: Yes (Other)
  Sender: FDA-Public Use
  Company Number: PHHY2011BR86557

PATIENT
  Sex: Female
  Weight: 64 kg

DRUGS (1)
  1. EXELON [Suspect]
     Indication: MEMORY IMPAIRMENT
     Dosage: 9.5 MG, DAILY
     Route: 062

REACTIONS (4)
  - FALL [None]
  - FEMUR FRACTURE [None]
  - BONE LOSS [None]
  - BONE DENSITY DECREASED [None]
